FAERS Safety Report 5574610-2 (Version None)
Quarter: 2007Q4

REPORT INFORMATION
  Report Type: 
  Country: None (occurrence: None)
  Receive Date: 20071227
  Receipt Date: 20071217
  Transmission Date: 20080405
  Serious: Yes (Other)
  Sender: FDA-Public Use
  Company Number: US-BAYER-200713571BWH

PATIENT
  Age: 26 Year
  Sex: Female

DRUGS (4)
  1. AVELOX [Suspect]
     Indication: ACUTE SINUSITIS
     Dosage: TOTAL DAILY DOSE: 400 MG  UNIT DOSE: 400 MG
     Route: 048
     Dates: start: 20070924, end: 20070926
  2. ALLEGRA D-24 [Concomitant]
  3. ADVAIR DISKUS 100/50 [Concomitant]
  4. NASACORT AQ [Concomitant]

REACTIONS (4)
  - CHEST PAIN [None]
  - DYSPNOEA [None]
  - HYPOAESTHESIA [None]
  - PAIN IN EXTREMITY [None]
